FAERS Safety Report 16202660 (Version 2)
Quarter: 2019Q2

REPORT INFORMATION
  Report Type: Report from Study
  Country: US (occurrence: US)
  Receive Date: 20190416
  Receipt Date: 20190417
  Transmission Date: 20190711
  Serious: Yes (Hospitalization)
  Sender: FDA-Public Use
  Company Number: US-EISAI MEDICAL RESEARCH-EC-2019-053263

PATIENT
  Age: 66 Year
  Sex: Female

DRUGS (4)
  1. LENVIMA [Suspect]
     Active Substance: LENVATINIB
     Dosage: 8 MG FOR 3 DAYS, 12 MG FOR 4 DAYS
     Route: 048
     Dates: start: 201903
  2. LYNPARZA [Suspect]
     Active Substance: OLAPARIB
     Dosage: UNSPECIFIED ADJUSTED FREQUENCY
     Route: 065
     Dates: start: 2019
  3. LENVIMA [Suspect]
     Active Substance: LENVATINIB
     Indication: HEPATOCELLULAR CARCINOMA
     Route: 048
     Dates: start: 20190218, end: 201903
  4. LYNPARZA [Suspect]
     Active Substance: OLAPARIB
     Indication: PRODUCT USED FOR UNKNOWN INDICATION
     Dosage: UNKNOWN
     Route: 065
     Dates: start: 2019, end: 2019

REACTIONS (11)
  - Blood potassium decreased [Recovered/Resolved]
  - Constipation [Not Recovered/Not Resolved]
  - Dizziness [Recovering/Resolving]
  - Blood pressure increased [Not Recovered/Not Resolved]
  - Blood glucose increased [Not Recovered/Not Resolved]
  - Dysphonia [Recovering/Resolving]
  - Fatigue [Recovering/Resolving]
  - Blood urea increased [Recovered/Resolved]
  - Abdominal pain [Recovering/Resolving]
  - Asthenia [Recovered/Resolved]
  - Nausea [Recovering/Resolving]

NARRATIVE: CASE EVENT DATE: 2019
